FAERS Safety Report 6325948-2 (Version None)
Quarter: 2009Q3

REPORT INFORMATION
  Report Type: 
  Country: None (occurrence: None)
  Receive Date: 20090818
  Receipt Date: 20090429
  Transmission Date: 20100115
  Serious: Yes (Other)
  Sender: FDA-Public Use
  Company Number: WAES 0905USA00008

PATIENT
  Age: 58 Year
  Sex: Male

DRUGS (7)
  1. JANUVIA [Suspect]
     Indication: DIABETES MELLITUS
     Dosage: 100 MG/DAILY/PO
     Route: 048
  2. DIOVAN [Concomitant]
  3. LIPITOR [Concomitant]
  4. NORVASC [Concomitant]
  5. TRICOR [Concomitant]
  6. ASPIRIN [Concomitant]
  7. METFORMIN HCL [Concomitant]

REACTIONS (1)
  - PANCREATITIS [None]
